FAERS Safety Report 5277890-6 (Version None)
Quarter: 2007Q1

REPORT INFORMATION
  Report Type: 
  Country: None (occurrence: None)
  Receive Date: 20070321
  Receipt Date: 20070314
  Transmission Date: 20070707
  Serious: Yes (Other)
  Sender: FDA-Public Use
  Company Number: 232000K07USA

PATIENT
  Age: 32 Year
  Sex: Female

DRUGS (6)
  1. REBIF [Suspect]
     Indication: MULTIPLE SCLEROSIS
     Dosage: 44 MCG, 3 IN 1 WEEKS, SUBCUTANEOUS
     Route: 058
     Dates: start: 20040914
  2. NEURONTIN [Concomitant]
  3. CYMBALTA [Concomitant]
  4. TOPAMAX [Concomitant]
  5. FLEXERIL [Concomitant]
  6. VICODIN [Concomitant]

REACTIONS (7)
  - BENIGN NEOPLASM OF THYROID GLAND [None]
  - BLOOD THYROID STIMULATING HORMONE INCREASED [None]
  - CALCINOSIS [None]
  - DRY SKIN [None]
  - FEELING COLD [None]
  - NIGHT SWEATS [None]
  - WEIGHT INCREASED [None]
